FAERS Safety Report 7345751-4 (Version None)
Quarter: 2011Q1

REPORT INFORMATION
  Report Type: 
  Country: None (occurrence: None)
  Receive Date: 20110308
  Receipt Date: 20110308
  Transmission Date: 20110831
  Serious: Yes (Other)
  Sender: FDA-Public Use
  Company Number: None

PATIENT
  Age: 83 Year
  Sex: Female
  Weight: 43.0917 kg

DRUGS (1)
  1. RECLAST [Suspect]

REACTIONS (4)
  - WEIGHT DECREASED [None]
  - GOITRE [None]
  - PAIN IN EXTREMITY [None]
  - BONE DENSITY DECREASED [None]
